FAERS Safety Report 6835265-X (Version None)
Quarter: 2010Q3

REPORT INFORMATION
  Report Type: 
  Country: None (occurrence: None)
  Receive Date: 20100713
  Receipt Date: 20100629
  Transmission Date: 20110219
  Serious: Yes (Hospitalization, Other)
  Sender: FDA-Public Use
  Company Number: GB-RANBAXY-2007RR-09501

PATIENT

DRUGS (1)
  1. ACETAMINOPHEN [Suspect]
     Indication: TOOTHACHE
     Dosage: 60 DF, TOTAL
     Route: 048

REACTIONS (10)
  - ABDOMINAL PAIN [None]
  - ABDOMINAL RIGIDITY [None]
  - ABDOMINAL TENDERNESS [None]
  - ACCIDENTAL OVERDOSE [None]
  - BLOOD BILIRUBIN INCREASED [None]
  - DRUG TOXICITY [None]
  - EMOTIONAL DISTRESS [None]
  - HEPATIC FAILURE [None]
  - VOMITING [None]
  - WHITE BLOOD CELL COUNT INCREASED [None]
